FAERS Safety Report 8347959-8 (Version None)
Quarter: 2012Q2

REPORT INFORMATION
  Report Type: 
  Country: None (occurrence: None)
  Receive Date: 20120509
  Receipt Date: 20120424
  Transmission Date: 20120825
  Serious: Yes (Death, Hospitalization)
  Sender: FDA-Public Use
  Company Number: US-ENDO PHARMACEUTICALS INC.-PERC20120082

PATIENT
  Sex: Male
  Weight: 71.278 kg

DRUGS (3)
  1. PERCOCET [Suspect]
     Indication: PRODUCT USED FOR UNKNOWN INDICATION
     Dosage: UNK
     Route: 048
  2. ZOMETA [Concomitant]
  3. PROVENGE [Suspect]
     Indication: PROSTATE CANCER METASTATIC
     Dosage: 250 ML
     Dates: start: 20120112, end: 20120112

REACTIONS (9)
  - LUMBAR SPINAL STENOSIS [None]
  - CONSTIPATION [None]
  - DERMATITIS [None]
  - LIVER FUNCTION TEST ABNORMAL [None]
  - DEATH [None]
  - ANAEMIA [None]
  - RENAL FAILURE [None]
  - FALL [None]
  - PNEUMONIA [None]
